FAERS Safety Report 23175994 (Version 1)
Quarter: 2023Q4

REPORT INFORMATION
  Report Type: Spontaneous
  Country: FR (occurrence: FR)
  Receive Date: 20231113
  Receipt Date: 20231113
  Transmission Date: 20240110
  Serious: Yes (Other)
  Sender: FDA-Public Use
  Company Number: FR-RENAUDINFR-2022001711

PATIENT
  Age: 20 Year
  Sex: Male
  Weight: 89 kg

DRUGS (2)
  1. LIDOCAINE [Suspect]
     Active Substance: LIDOCAINE
     Indication: Anaesthesia
     Dosage: 1.1 MILLIGRAM/KILOGRAM
     Route: 065
  2. ROPIVACAINE [Suspect]
     Active Substance: ROPIVACAINE
     Indication: Anaesthesia
     Dosage: 0.85 MILLIGRAM/KILOGRAM
     Route: 065

REACTIONS (3)
  - Agitation [Recovered/Resolved]
  - Dysgeusia [Recovered/Resolved]
  - Circulatory collapse [Recovered/Resolved]
